FAERS Safety Report 10031907 (Version 1)
Quarter: 2014Q1

REPORT INFORMATION
  Report Type: Spontaneous
  Country: JP (occurrence: JP)
  Receive Date: 20140324
  Receipt Date: 20140324
  Transmission Date: 20141002
  Serious: Yes (Other)
  Sender: FDA-Public Use
  Company Number: JP-MYLANLABS-2014S1006093

PATIENT
  Age: 73 Year
  Sex: Female

DRUGS (4)
  1. LIDOCAINE [Suspect]
     Indication: PAIN
     Route: 030
     Dates: start: 201006, end: 201011
  2. THIAMINE HYDROCHLORIDE [Suspect]
     Indication: PAIN
     Route: 030
     Dates: start: 201006, end: 201011
  3. DIBUCAINE HYDROCHLORIDE [Suspect]
     Indication: PAIN
     Route: 030
     Dates: start: 201006, end: 201011
  4. BETAMETHASONE ACETATE [Concomitant]
     Indication: PAIN
     Route: 030

REACTIONS (1)
  - Panniculitis [Unknown]
